FAERS Safety Report 4705134-X (Version None)
Quarter: 2005Q3

REPORT INFORMATION
  Report Type: 
  Country: None (occurrence: None)
  Receive Date: 20050701
  Receipt Date: 20050509
  Transmission Date: 20060218
  Serious: Yes (Hospitalization)
  Sender: FDA-Public Use
  Company Number: PHHO2005DK07642

PATIENT
  Age: 58 Year
  Sex: Male
  Weight: 86 kg

DRUGS (3)
  1. IMUREL [Concomitant]
     Indication: LUNG TRANSPLANT
     Dosage: 75 MG / DAY
     Route: 048
     Dates: start: 20041115
  2. PREDNISOLONE [Concomitant]
     Indication: LUNG TRANSPLANT
     Dosage: 35 MG / DAY
     Route: 048
     Dates: start: 20050501
  3. SANDIMMUNE [Suspect]
     Indication: LUNG TRANSPLANT
     Dosage: 350 MG / DAY
     Route: 048
     Dates: start: 20041115

REACTIONS (3)
  - DYSPNOEA [None]
  - OBLITERATIVE BRONCHIOLITIS [None]
  - PULMONARY FUNCTION TEST DECREASED [None]
